FAERS Safety Report 8404788-4 (Version None)
Quarter: 2012Q2

REPORT INFORMATION
  Report Type: 
  Country: None (occurrence: None)
  Receive Date: 20120601
  Receipt Date: 20120525
  Transmission Date: 20120825
  Serious: Yes (Hospitalization)
  Sender: FDA-Public Use
  Company Number: JP-MERCK-1205USA02403

PATIENT
  Age: 79 Year
  Sex: Female
  Weight: 58 kg

DRUGS (11)
  1. URSO 250 [Concomitant]
     Dosage: DAILY DOSE UNKNOWN
     Route: 048
  2. CANDESARTAN CILEXETIL [Concomitant]
     Dosage: DAILY DOSE UNKNOWN
     Route: 048
  3. FOSAMAX [Suspect]
     Indication: OSTEOPOROSIS
     Route: 048
     Dates: end: 20111025
  4. VITAMIN B12 [Concomitant]
     Dosage: DAILY DOSE UNKNOWN
     Route: 048
  5. OMEPRAZOLE [Concomitant]
     Dosage: DAILY DOSE UNKNOWN
     Route: 048
  6. INDAPAMIDE [Concomitant]
     Dosage: DAILY DOSE UNKNOWN
     Route: 048
  7. ASPIRIN [Concomitant]
     Dosage: DAILY DOSE UNKNOWN
     Route: 048
  8. ALFAROL [Concomitant]
     Dosage: DAILY DOSAGE UNKNOWN
     Route: 048
  9. SUPACAL [Concomitant]
     Dosage: DAILY DOSE UNKNOWN
     Route: 048
  10. LIMAPROST ALFADEX [Concomitant]
     Dosage: DAILY DOSE UNKNOWN
     Route: 048
  11. ISOSORBIDE MONONITRATE [Concomitant]
     Dosage: DAILY DOSE UNKNOWN
     Route: 048

REACTIONS (1)
  - FEMUR FRACTURE [None]
